FAERS Safety Report 4690549-9 (Version None)
Quarter: 2005Q2

REPORT INFORMATION
  Report Type: 
  Country: None (occurrence: None)
  Receive Date: 20050614
  Receipt Date: 20050614
  Transmission Date: 20051028
  Serious: No
  Sender: FDA-Public Use
  Company Number: None

PATIENT
  Sex: Female

DRUGS (2)
  1. ENBREL [Suspect]
     Indication: ARTHRITIS
     Dosage: 50MG   BID   SUBCUTANEOUS
     Route: 058
     Dates: start: 20041111, end: 20050222
  2. ENBREL [Suspect]
     Indication: PSORIASIS
     Dosage: 50MG   BID   SUBCUTANEOUS
     Route: 058
     Dates: start: 20041111, end: 20050222

REACTIONS (2)
  - CERVICAL SPINAL STENOSIS [None]
  - PARAESTHESIA [None]
